FAERS Safety Report 15689108 (Version 1)
Quarter: 2018Q4

REPORT INFORMATION
  Report Type: Spontaneous
  Country: US (occurrence: US)
  Receive Date: 20181204
  Receipt Date: 20181204
  Transmission Date: 20190205
  Serious: No
  Sender: FDA-Public Use
  Company Number: None

PATIENT
  Age: 35 Month
  Sex: Female
  Weight: 12.6 kg

DRUGS (1)
  1. TAMIFLU [Suspect]
     Active Substance: OSELTAMIVIR PHOSPHATE
     Indication: INFLUENZA
     Dosage: ?          QUANTITY:5 MLS;?
     Route: 048
     Dates: start: 20181129, end: 20181203

REACTIONS (5)
  - Diarrhoea [None]
  - Insomnia [None]
  - Abdominal pain upper [None]
  - Vomiting [None]
  - Selective IgG subclass deficiency [None]

NARRATIVE: CASE EVENT DATE: 20181203
